FAERS Safety Report 9467828 (Version 1)
Quarter: 2013Q3

REPORT INFORMATION
  Report Type: Spontaneous
  Country: IT (occurrence: IT)
  Receive Date: 20130821
  Receipt Date: 20130821
  Transmission Date: 20140515
  Serious: Yes (Hospitalization)
  Sender: FDA-Public Use
  Company Number: IT-RANBAXY-2013R1-72362

PATIENT
  Age: 30 Year
  Sex: Female

DRUGS (2)
  1. PARACETAMOL [Suspect]
     Indication: SUICIDE ATTEMPT
     Dosage: 20 DOSAGE UNITS, COMPLETE
     Route: 048
     Dates: start: 20130707, end: 20130707
  2. CO-EFFERALGAN [Suspect]
     Indication: SUICIDE ATTEMPT
     Dosage: 8 DOSAGE UNITS, COMPLETE
     Route: 048
     Dates: start: 20130707, end: 20130707

REACTIONS (1)
  - Toxicity to various agents [Recovered/Resolved]
